FAERS Safety Report 8294337 (Version 2)
Quarter: 2013Q1

REPORT INFORMATION
  Report Type: Spontaneous
  Country: US (occurrence: US)
  Receive Date: 20111216
  Receipt Date: 20130327
  Transmission Date: 20140127
  Serious: No
  Sender: FDA-Public Use
  Company Number: US-ALLERGAN-1112844US

PATIENT
  Age: 55 Year
  Sex: Female

DRUGS (5)
  1. LATISSE 0.03% [Suspect]
     Indication: MADAROSIS
     Dosage: UNK
     Route: 061
  2. LATISSE 0.03% [Suspect]
     Indication: GROWTH OF EYELASHES
     Dosage: 2 GTT, UNK
  3. METOPROLOL [Concomitant]
     Indication: HYPERTENSION
     Dosage: UNK
     Dates: start: 201103
  4. ANTI-ANXIETY MEDICATION [Concomitant]
     Indication: ANXIETY
     Dosage: UNK
     Dates: start: 201103
  5. SLEEP MEDICATION [Concomitant]
     Indication: SLEEP DISORDER
     Dosage: UNK
     Dates: start: 201103

REACTIONS (4)
  - Madarosis [Not Recovered/Not Resolved]
  - Hair growth abnormal [Not Recovered/Not Resolved]
  - Madarosis [Unknown]
  - Madarosis [Not Recovered/Not Resolved]
